FAERS Safety Report 7646213-7 (Version None)
Quarter: 2011Q3

REPORT INFORMATION
  Report Type: 
  Country: None (occurrence: None)
  Receive Date: 20110801
  Receipt Date: 20110721
  Transmission Date: 20111222
  Serious: No
  Sender: FDA-Public Use
  Company Number: US-BIOGENIDEC-2011BI027547

PATIENT
  Age: 26 Year
  Sex: Male

DRUGS (1)
  1. TYSABRI [Suspect]
     Indication: MULTIPLE SCLEROSIS
     Route: 042

REACTIONS (5)
  - HEADACHE [None]
  - SCOTOMA [None]
  - HYPOAESTHESIA [None]
  - VISUAL IMPAIRMENT [None]
  - EYE PAIN [None]
